FAERS Safety Report 7265347-2 (Version None)
Quarter: 2011Q1

REPORT INFORMATION
  Report Type: 
  Country: None (occurrence: None)
  Receive Date: 20110131
  Receipt Date: 20110120
  Transmission Date: 20110831
  Serious: Yes (Hospitalization)
  Sender: FDA-Public Use
  Company Number: JP-ROCHE-626529

PATIENT
  Sex: Female
  Weight: 40 kg

DRUGS (20)
  1. PREDONINE [Concomitant]
     Route: 048
     Dates: start: 20081029
  2. TOCILIZUMAB [Suspect]
     Route: 041
     Dates: start: 20081126, end: 20081126
  3. TOCILIZUMAB [Suspect]
     Route: 041
     Dates: start: 20090729, end: 20090729
  4. PROGRAF [Concomitant]
     Route: 048
  5. ONEALFA [Concomitant]
     Dosage: FORM REPORTED: PERORAL AGENT
     Route: 048
  6. TOCILIZUMAB [Suspect]
     Route: 041
     Dates: start: 20081217, end: 20081217
  7. TOCILIZUMAB [Suspect]
     Route: 041
     Dates: start: 20090204, end: 20090204
  8. TOCILIZUMAB [Suspect]
     Indication: RHEUMATOID ARTHRITIS
     Route: 041
     Dates: start: 20080806, end: 20080806
  9. TOCILIZUMAB [Suspect]
     Route: 041
     Dates: start: 20080902, end: 20080902
  10. TOCILIZUMAB [Suspect]
     Route: 041
     Dates: start: 20090610, end: 20090610
  11. PREDONINE [Concomitant]
     Route: 048
     Dates: end: 20080902
  12. PREDONINE [Concomitant]
     Route: 048
     Dates: start: 20080903, end: 20081028
  13. TOCILIZUMAB [Suspect]
     Route: 041
     Dates: start: 20090325, end: 20090325
  14. VOLTAREN [Concomitant]
     Dosage: FORM REPORTED: PERORAL AGENT
     Route: 048
  15. MUCOSTA [Concomitant]
     Dosage: FORM REPORTED: PERORAL AGENT.
     Route: 048
  16. TOCILIZUMAB [Suspect]
     Route: 041
     Dates: start: 20081028, end: 20081028
  17. TOCILIZUMAB [Suspect]
     Route: 041
     Dates: start: 20090114, end: 20090114
  18. TAKEPRON [Concomitant]
     Route: 048
  19. TOCILIZUMAB [Suspect]
     Route: 041
     Dates: start: 20090630, end: 20090630
  20. FOSAMAX [Concomitant]
     Dosage: DRUG REPORTED AS FOSAMAC 5 MG
     Route: 048

REACTIONS (3)
  - PNEUMOTHORAX [None]
  - JOINT DISLOCATION [None]
  - JOINT ARTHROPLASTY [None]
